FAERS Safety Report 19567064 (Version 12)
Quarter: 2024Q2

REPORT INFORMATION
  Report Type: Spontaneous
  Country: US (occurrence: US)
  Receive Date: 20210714
  Receipt Date: 20240624
  Transmission Date: 20240716
  Serious: Yes (Other)
  Sender: FDA-Public Use
  Company Number: US-SA-SAC20210713000096

PATIENT
  Age: 45 Year
  Sex: Male
  Weight: 106.5 kg

DRUGS (25)
  1. ELOCTATE [Suspect]
     Active Substance: EFMOROCTOCOG ALFA
     Indication: Factor VII deficiency
     Dosage: 6000 U, BIW(6000 U, TWICE WEEKLY AND PRN)
     Route: 042
     Dates: start: 201610
  2. ELOCTATE [Suspect]
     Active Substance: EFMOROCTOCOG ALFA
     Indication: Factor VII deficiency
     Dosage: 6000 U, BIW(6000 U, TWICE WEEKLY AND PRN)
     Route: 042
     Dates: start: 201610
  3. ELOCTATE [Suspect]
     Active Substance: EFMOROCTOCOG ALFA
     Indication: Haemorrhage
     Dosage: UNK
     Route: 050
     Dates: start: 201610
  4. ELOCTATE [Suspect]
     Active Substance: EFMOROCTOCOG ALFA
     Indication: Haemorrhage
     Dosage: UNK
     Route: 050
     Dates: start: 201610
  5. ELOCTATE [Suspect]
     Active Substance: EFMOROCTOCOG ALFA
     Dosage: 600 IU, QW
     Route: 042
     Dates: start: 201801
  6. ELOCTATE [Suspect]
     Active Substance: EFMOROCTOCOG ALFA
     Dosage: 600 IU, QW
     Route: 042
     Dates: start: 201801
  7. ELOCTATE [Suspect]
     Active Substance: EFMOROCTOCOG ALFA
     Dosage: 600 IU, PRN
     Route: 042
     Dates: start: 201801
  8. ELOCTATE [Suspect]
     Active Substance: EFMOROCTOCOG ALFA
     Dosage: 600 IU, PRN
     Route: 042
     Dates: start: 201801
  9. ELOCTATE [Suspect]
     Active Substance: EFMOROCTOCOG ALFA
     Dosage: 6000 IU (EVERY 10-14 DAYS)
     Route: 042
     Dates: start: 20210710
  10. ELOCTATE [Suspect]
     Active Substance: EFMOROCTOCOG ALFA
     Dosage: 6000 IU (EVERY 10-14 DAYS)
     Route: 042
     Dates: start: 20210710
  11. ELOCTATE [Suspect]
     Active Substance: EFMOROCTOCOG ALFA
     Dosage: 6000 IU, BIW (5400-6600) FOR PROPHYLAXIS
     Route: 042
     Dates: start: 202107
  12. ELOCTATE [Suspect]
     Active Substance: EFMOROCTOCOG ALFA
     Dosage: 6000 IU, BIW (5400-6600) FOR PROPHYLAXIS
     Route: 042
     Dates: start: 202107
  13. ELOCTATE [Suspect]
     Active Substance: EFMOROCTOCOG ALFA
     Dosage: 6000 IU, PRN (5400-6600) (DAILY AS NEEDED FOR 2 ADDITIONAL DOSES AS DIRECTED)
     Route: 042
     Dates: start: 202107
  14. ELOCTATE [Suspect]
     Active Substance: EFMOROCTOCOG ALFA
     Dosage: 6000 IU, PRN (5400-6600) (DAILY AS NEEDED FOR 2 ADDITIONAL DOSES AS DIRECTED)
     Route: 042
     Dates: start: 202107
  15. ELOCTATE [Suspect]
     Active Substance: EFMOROCTOCOG ALFA
     Dosage: 524 IU
     Route: 042
  16. ELOCTATE [Suspect]
     Active Substance: EFMOROCTOCOG ALFA
     Dosage: 524 IU
     Route: 042
  17. ELOCTATE [Suspect]
     Active Substance: EFMOROCTOCOG ALFA
     Dosage: 5400-6600) SLOW IV PUSH TWICE WEEKLY AND DAILY AS NEEDED
     Route: 042
     Dates: start: 20220505
  18. ELOCTATE [Suspect]
     Active Substance: EFMOROCTOCOG ALFA
     Dosage: 5400-6600) SLOW IV PUSH TWICE WEEKLY AND DAILY AS NEEDED
     Route: 042
     Dates: start: 20220505
  19. ELOCTATE [Suspect]
     Active Substance: EFMOROCTOCOG ALFA
     Dosage: 4222 IU, QW
     Route: 042
     Dates: start: 202107
  20. ELOCTATE [Suspect]
     Active Substance: EFMOROCTOCOG ALFA
     Dosage: 4222 IU, QW
     Route: 042
     Dates: start: 202107
  21. ELOCTATE [Suspect]
     Active Substance: EFMOROCTOCOG ALFA
     Dosage: 1588 U, QW
     Route: 042
  22. ELOCTATE [Suspect]
     Active Substance: EFMOROCTOCOG ALFA
     Dosage: 1588 U, QW
     Route: 042
  23. ELOCTATE [Suspect]
     Active Substance: EFMOROCTOCOG ALFA
     Dosage: 6000 IU, PRN
     Route: 042
     Dates: start: 201610
  24. ELOCTATE [Suspect]
     Active Substance: EFMOROCTOCOG ALFA
     Dosage: 6000 IU, PRN
     Route: 042
     Dates: start: 201610
  25. GENVOYA [Concomitant]
     Active Substance: COBICISTAT\ELVITEGRAVIR\EMTRICITABINE\TENOFOVIR ALAFENAMIDE FUMARATE
     Dosage: UNK

REACTIONS (12)
  - Haemorrhage [Recovered/Resolved]
  - Haemorrhage [Recovered/Resolved]
  - Haemorrhage [Recovered/Resolved]
  - Haemorrhage [Unknown]
  - Spontaneous haemorrhage [Recovered/Resolved]
  - Epistaxis [Recovered/Resolved]
  - Contusion [Unknown]
  - Weight fluctuation [Unknown]
  - Haemorrhage [Unknown]
  - Spontaneous haemorrhage [Recovered/Resolved]
  - Treatment noncompliance [Unknown]
  - Inappropriate schedule of product administration [Unknown]

NARRATIVE: CASE EVENT DATE: 20210601
